FAERS Safety Report 16881531 (Version 4)
Quarter: 2019Q4

REPORT INFORMATION
  Report Type: Report from Study
  Country: CO (occurrence: CO)
  Receive Date: 20191003
  Receipt Date: 20191211
  Transmission Date: 20200122
  Serious: Yes (Other)
  Sender: FDA-Public Use
  Company Number: CO-INCYTE CORPORATION-2019IN009866

PATIENT

DRUGS (2)
  1. JAKAVI [Suspect]
     Active Substance: RUXOLITINIB
     Dosage: 10 MG, QD
     Route: 048
  2. JAKAVI [Suspect]
     Active Substance: RUXOLITINIB
     Indication: MYELOFIBROSIS
     Dosage: 20 MG, QD
     Route: 048

REACTIONS (7)
  - Spleen disorder [Recovering/Resolving]
  - Malaise [Unknown]
  - Rebound effect [Unknown]
  - Splenomegaly [Unknown]
  - General physical health deterioration [Unknown]
  - Inappropriate schedule of product administration [Unknown]
  - Anxiety [Unknown]
